FAERS Safety Report 24580655 (Version 2)
Quarter: 2024Q4

REPORT INFORMATION
  Report Type: Spontaneous
  Country: CA (occurrence: CA)
  Receive Date: 20241105
  Receipt Date: 20241108
  Transmission Date: 20250114
  Serious: Yes (Other)
  Sender: PFIZER
  Company Number: CA-PFIZER INC-PV202400122126

PATIENT
  Age: 70 Year
  Sex: Female
  Weight: 83 kg

DRUGS (16)
  1. ELREXFIO [Suspect]
     Active Substance: ELRANATAMAB-BCMM
     Dosage: 12 MG, ON DAY 1
     Route: 058
     Dates: start: 20240916
  2. ELREXFIO [Suspect]
     Active Substance: ELRANATAMAB-BCMM
     Dosage: 32 MG, ON DAY 4
     Route: 058
     Dates: start: 20240919
  3. ELREXFIO [Suspect]
     Active Substance: ELRANATAMAB-BCMM
     Dosage: 76 MG, WEEKLY (DAY 8)
     Route: 058
     Dates: start: 20240923
  4. ELREXFIO [Suspect]
     Active Substance: ELRANATAMAB-BCMM
     Dosage: 72 MG, (1.8 ML (72 MG TOTAL) ONCE FOR 1 DOSE)
     Route: 058
     Dates: start: 20240930
  5. ELREXFIO [Suspect]
     Active Substance: ELRANATAMAB-BCMM
     Dosage: 76 MG, WEEKLY
     Route: 058
     Dates: start: 20241007
  6. ELREXFIO [Suspect]
     Active Substance: ELRANATAMAB-BCMM
     Dosage: 76 MG, WEEKLY
     Route: 058
     Dates: start: 20241015
  7. ELREXFIO [Suspect]
     Active Substance: ELRANATAMAB-BCMM
     Dosage: 76 MG, WEEKLY
     Route: 058
     Dates: start: 20241021
  8. ELREXFIO [Suspect]
     Active Substance: ELRANATAMAB-BCMM
     Dosage: 76 MG, WEEKLY
     Route: 058
     Dates: start: 20241028
  9. BENADRYL [Concomitant]
     Active Substance: DIPHENHYDRAMINE HYDROCHLORIDE
     Indication: Premedication
     Dosage: 25 MG
     Route: 048
     Dates: start: 20240916
  10. BENADRYL [Concomitant]
     Active Substance: DIPHENHYDRAMINE HYDROCHLORIDE
     Dosage: 25 MG
     Route: 048
     Dates: start: 20240919
  11. DAPSONE [Concomitant]
     Active Substance: DAPSONE
     Indication: Antibiotic prophylaxis
     Dosage: 100 MG, DAILY (LONG TERM)
     Route: 048
  12. DEXAMETHASONE [Concomitant]
     Active Substance: DEXAMETHASONE
     Indication: Premedication
     Dosage: 12 MG, WEEKLY
  13. DEXAMETHASONE [Concomitant]
     Active Substance: DEXAMETHASONE
     Dosage: 16 MG
     Route: 048
     Dates: start: 20240916
  14. DEXAMETHASONE [Concomitant]
     Active Substance: DEXAMETHASONE
     Dosage: 16 MG
     Route: 048
     Dates: start: 20240919
  15. TYLENOL [Concomitant]
     Active Substance: ACETAMINOPHEN
     Indication: Premedication
     Dosage: 650 MG
     Route: 048
     Dates: start: 20240916
  16. TYLENOL [Concomitant]
     Active Substance: ACETAMINOPHEN
     Dosage: 650 MG
     Route: 048
     Dates: start: 20240919

REACTIONS (5)
  - Blood pressure systolic increased [Unknown]
  - Injection site erythema [Unknown]
  - Injection site rash [Unknown]
  - Pain [Unknown]
  - Off label use [Unknown]

NARRATIVE: CASE EVENT DATE: 20240916
